FAERS Safety Report 7561242-X (Version None)
Quarter: 2011Q2

REPORT INFORMATION
  Report Type: 
  Country: None (occurrence: None)
  Receive Date: 20110621
  Receipt Date: 20101208
  Transmission Date: 20111010
  Serious: No
  Sender: FDA-Public Use
  Company Number: US-ASTRAZENECA-2010SE58216

PATIENT
  Age: 7 Year
  Sex: Male
  Weight: 29.5 kg

DRUGS (1)
  1. PULMICORT FLEXHALER [Suspect]
     Indication: BRONCHITIS
     Dosage: 90 MCG ONE PUFF TWO TIMES A DAY
     Route: 055
     Dates: start: 20101205

REACTIONS (3)
  - AGGRESSION [None]
  - IRRITABILITY [None]
  - PSYCHOMOTOR HYPERACTIVITY [None]
